FAERS Safety Report 12941945 (Version 2)
Quarter: 2016Q4

REPORT INFORMATION
  Report Type: Spontaneous
  Country: US (occurrence: US)
  Receive Date: 20161114
  Receipt Date: 20161114
  Transmission Date: 20170207
  Serious: Yes (Hospitalization)
  Sender: FDA-Public Use
  Company Number: US-ASTRAZENECA-2016SF17722

PATIENT
  Sex: Male

DRUGS (4)
  1. ACS MEDICATIONS [Concomitant]
  2. BRILINTA [Suspect]
     Active Substance: TICAGRELOR
     Indication: ACUTE CORONARY SYNDROME
     Dosage: 180.0MG ONCE/SINGLE ADMINISTRATION
     Route: 048
  3. ASPIRIN. [Concomitant]
     Active Substance: ASPIRIN
     Indication: ACUTE CORONARY SYNDROME
  4. BRILINTA [Suspect]
     Active Substance: TICAGRELOR
     Indication: ACUTE CORONARY SYNDROME
     Dosage: 90.0MG ONCE/SINGLE ADMINISTRATION
     Route: 048

REACTIONS (7)
  - Product use issue [Recovered/Resolved]
  - Antiphospholipid antibodies positive [Unknown]
  - Off label use [Recovered/Resolved]
  - Heparin-induced thrombocytopenia [Unknown]
  - Myocardial infarction [Unknown]
  - Vascular stent thrombosis [Unknown]
  - Therapy non-responder [Unknown]
